FAERS Safety Report 23879873 (Version 1)
Quarter: 2024Q2

REPORT INFORMATION
  Report Type: Spontaneous
  Country: US (occurrence: US)
  Receive Date: 20240521
  Receipt Date: 20240521
  Transmission Date: 20240716
  Serious: No
  Sender: FDA-Public Use
  Company Number: US-PFIZER INC-PV202400066123

PATIENT
  Age: 66 Year
  Sex: Female
  Weight: 61.23 kg

DRUGS (1)
  1. MEDROXYPROGESTERONE ACETATE [Suspect]
     Active Substance: MEDROXYPROGESTERONE ACETATE
     Indication: Endometrial hyperplasia
     Dosage: 10 MG, 1X/DAY

REACTIONS (10)
  - Somnolence [Unknown]
  - Abdominal pain [Unknown]
  - Back pain [Unknown]
  - Confusional state [Unknown]
  - Memory impairment [Unknown]
  - Swelling of eyelid [Unknown]
  - Rash [Unknown]
  - Erythema [Unknown]
  - Skin exfoliation [Unknown]
  - Fatigue [Unknown]
